FAERS Safety Report 6098366-2 (Version None)
Quarter: 2009Q1

REPORT INFORMATION
  Report Type: 
  Country: None (occurrence: None)
  Receive Date: 20090302
  Receipt Date: 20090220
  Transmission Date: 20090719
  Serious: Yes (Hospitalization, Other)
  Sender: FDA-Public Use
  Company Number: US-AMGEN-QUU301421

PATIENT
  Sex: Female
  Weight: 61.3 kg

DRUGS (10)
  1. ENBREL [Suspect]
     Indication: RHEUMATOID ARTHRITIS
     Route: 058
     Dates: start: 19940119, end: 20080128
  2. ENBREL [Suspect]
     Route: 058
     Dates: start: 20070202, end: 20081220
  3. ARAVA [Suspect]
     Dates: start: 20040119, end: 20050325
  4. ARAVA [Suspect]
     Dates: start: 20050301, end: 20050325
  5. PLAQUENIL [Suspect]
     Dates: start: 20060920, end: 20070913
  6. PLAQUENIL [Suspect]
     Dates: start: 20070319, end: 20070913
  7. PREDNISONE [Suspect]
     Dates: start: 20061101
  8. AZULFIDINE EN-TABS [Suspect]
     Dates: start: 20080304, end: 20080606
  9. MEDROL [Suspect]
     Dates: start: 20080304, end: 20080310
  10. PRILOSEC [Concomitant]
     Dates: start: 20061101

REACTIONS (9)
  - APPENDICITIS PERFORATED [None]
  - BETA HAEMOLYTIC STREPTOCOCCAL INFECTION [None]
  - CELLULITIS [None]
  - ESCHERICHIA INFECTION [None]
  - LUNG NEOPLASM [None]
  - LYMPHADENOPATHY [None]
  - OVARIAN CYST [None]
  - PNEUMONIA [None]
  - PSEUDOMONAS INFECTION [None]
